FAERS Safety Report 11025500 (Version 4)
Quarter: 2017Q1

REPORT INFORMATION
  Report Type: Spontaneous
  Country: US (occurrence: US)
  Receive Date: 20150414
  Receipt Date: 20170118
  Transmission Date: 20170428
  Serious: Yes (Hospitalization, Other)
  Sender: FDA-Public Use
  Company Number: US-PFIZER INC-2015120292

PATIENT
  Age: 59 Year
  Sex: Female
  Weight: 70 kg

DRUGS (4)
  1. XALKORI [Suspect]
     Active Substance: CRIZOTINIB
     Dosage: UNK
     Route: 048
  2. XALKORI [Suspect]
     Active Substance: CRIZOTINIB
     Indication: LUNG NEOPLASM MALIGNANT
     Dosage: 250 MG, 2X/DAY (1 CAP TWICE DAILY)
     Route: 048
     Dates: start: 20150305
  3. XALKORI [Suspect]
     Active Substance: CRIZOTINIB
     Dosage: UNK
     Route: 048
     Dates: start: 20150924
  4. XALKORI [Suspect]
     Active Substance: CRIZOTINIB
     Dosage: 250 MG, 2X/DAY
     Route: 048
     Dates: end: 20161031

REACTIONS (14)
  - Chills [Unknown]
  - Weight fluctuation [Unknown]
  - Chest pain [Unknown]
  - Pulmonary oedema [Unknown]
  - Dizziness [Unknown]
  - Visual impairment [Unknown]
  - Wheezing [Unknown]
  - Bacterial infection [Unknown]
  - Nausea [Unknown]
  - Pneumonia [Unknown]
  - Neoplasm progression [Unknown]
  - Dyspnoea [Unknown]
  - Abdominal distension [Unknown]
  - Cough [Unknown]

NARRATIVE: CASE EVENT DATE: 2015
